FAERS Safety Report 4544085-0 (Version None)
Quarter: 2005Q1

REPORT INFORMATION
  Report Type: 
  Country: None (occurrence: None)
  Receive Date: 20050103
  Receipt Date: 20031210
  Transmission Date: 20050727
  Serious: Yes (Other)
  Sender: FDA-Public Use
  Company Number: PHBS2003GB14112

PATIENT
  Age: 64 Year
  Sex: Male

DRUGS (6)
  1. DIGOXIN [Suspect]
     Dosage: 250 UG/DAY
  2. ENALAPRIL (NGX) (ENALAPRIL MALEATE) [Suspect]
     Dosage: SEE IMAGE
  3. FUROSEMIDE (NGX) (FUROSEMIDE) [Suspect]
     Dosage: SEE IMAGE
  4. SPIRONOLACTONE [Suspect]
     Dosage: 25 MG/DAY
  5. DOXAZOSIN MESYLATE [Concomitant]
  6. WARFARIN (WARFARIN) [Concomitant]

REACTIONS (16)
  - ALPHA HAEMOLYTIC STREPTOCOCCAL INFECTION [None]
  - ANOREXIA [None]
  - AORTIC VALVE DISEASE MIXED [None]
  - AORTIC VALVE INCOMPETENCE [None]
  - BLOOD CREATININE INCREASED [None]
  - BLOOD UREA INCREASED [None]
  - CARDIAC MURMUR [None]
  - DEHYDRATION [None]
  - DIZZINESS [None]
  - ENDOCARDITIS [None]
  - HYPOTENSION [None]
  - MALAISE [None]
  - PYREXIA [None]
  - RENAL IMPAIRMENT [None]
  - THERAPEUTIC AGENT TOXICITY [None]
  - VISION BLURRED [None]
